FAERS Safety Report 14269779 (Version 2)
Quarter: 2017Q4

REPORT INFORMATION
  Report Type: Spontaneous
  Country: IE (occurrence: IE)
  Receive Date: 20171211
  Receipt Date: 20171229
  Transmission Date: 20180321
  Serious: Yes (Other)
  Sender: FDA-Public Use
  Company Number: IE-OTSUKA-2015_010170

PATIENT
  Age: 16 Year
  Sex: Male

DRUGS (5)
  1. ABILIFY [Suspect]
     Active Substance: ARIPIPRAZOLE
     Indication: TOURETTE^S DISORDER
     Dosage: 15 MG, UNK (2.5 MG IN THE MORNING AND 5 MG AT NIGHT 5 MG BID 5 MG TID)
     Route: 048
     Dates: start: 2013
  2. RITALIN [Concomitant]
     Active Substance: METHYLPHENIDATE HYDROCHLORIDE
     Indication: ATTENTION DEFICIT/HYPERACTIVITY DISORDER
     Dosage: UNK
     Route: 065
  3. ABILIFY [Suspect]
     Active Substance: ARIPIPRAZOLE
     Dosage: 7.5 MG, UNK (2.5 MG IN THE MORNING AND 5 MG AT NIGHT 5 MG BID 5 MG TID)
     Route: 048
     Dates: start: 2012, end: 201302
  4. ABILIFY [Suspect]
     Active Substance: ARIPIPRAZOLE
     Dosage: 10 MG, UNK (2.5 MG IN THE MORNING AND 5 MG AT NIGHT 5 MG BID 5 MG TID)
     Route: 048
     Dates: start: 201302, end: 201305
  5. METHYLPHENIDATE. [Suspect]
     Active Substance: METHYLPHENIDATE
     Indication: TOURETTE^S DISORDER
     Dosage: 15 MG, UNK
     Route: 048
     Dates: start: 2013

REACTIONS (2)
  - Facial paralysis [Not Recovered/Not Resolved]
  - Off label use [Unknown]

NARRATIVE: CASE EVENT DATE: 20150916
